FAERS Safety Report 20839864 (Version 1)
Quarter: 2022Q2

REPORT INFORMATION
  Report Type: Spontaneous
  Country: US (occurrence: None)
  Receive Date: 20220516
  Receipt Date: 20220516
  Transmission Date: 20220720
  Serious: No
  Sender: FDA-Public Use
  Company Number: None

PATIENT
  Age: 68 Year
  Sex: Female

DRUGS (1)
  1. OCTAGAM IMMUNE GLOBULIN (HUMAN) [Suspect]
     Active Substance: HUMAN IMMUNOGLOBULIN G
     Indication: Immunodeficiency
     Dosage: FREQUENCY : MONTHLY;?
     Route: 042
     Dates: start: 202205

REACTIONS (7)
  - Drug hypersensitivity [None]
  - Blood pressure increased [None]
  - Headache [None]
  - Back pain [None]
  - Nausea [None]
  - Blood immunoglobulin A decreased [None]
  - Selective IgA immunodeficiency [None]

NARRATIVE: CASE EVENT DATE: 20220502
